FAERS Safety Report 17885211 (Version 3)
Quarter: 2020Q3

REPORT INFORMATION
  Report Type: Spontaneous
  Country: US (occurrence: US)
  Receive Date: 20200611
  Receipt Date: 20200804
  Transmission Date: 20201103
  Serious: Yes (Hospitalization, Other)
  Sender: FDA-Public Use
  Company Number: US-PFIZER INC-2020226634

PATIENT
  Age: 63 Year
  Sex: Female
  Weight: 86.18 kg

DRUGS (1)
  1. XELJANZ XR [Suspect]
     Active Substance: TOFACITINIB CITRATE
     Indication: RHEUMATOID ARTHRITIS
     Dosage: 11 MG, 1X/DAY
     Route: 048
     Dates: start: 20200530, end: 20200602

REACTIONS (7)
  - Dehydration [Recovered/Resolved]
  - Hypotension [Recovered/Resolved]
  - Angiopathy [Recovered/Resolved]
  - Delirium [Unknown]
  - Feeling abnormal [Unknown]
  - Infection [Unknown]
  - Colitis [Unknown]

NARRATIVE: CASE EVENT DATE: 2020
